FAERS Safety Report 11623349 (Version 1)
Quarter: 2015Q4

REPORT INFORMATION
  Report Type: Spontaneous
  Country: US (occurrence: US)
  Receive Date: 20151013
  Receipt Date: 20151013
  Transmission Date: 20160304
  Serious: No
  Sender: FDA-Public Use
  Company Number: US-JNJFOC-20150112416

PATIENT
  Age: 3 Year
  Sex: Male
  Weight: 15.01 kg

DRUGS (3)
  1. PREDNISOLONE. [Concomitant]
     Active Substance: PREDNISOLONE
  2. IBUPROFEN. [Concomitant]
     Active Substance: IBUPROFEN
     Indication: CROUP INFECTIOUS
  3. EQUATE CHILDRENS ACETAMINOPHEN [Suspect]
     Active Substance: ACETAMINOPHEN
     Indication: CROUP INFECTIOUS
     Route: 048
     Dates: start: 20120410

REACTIONS (1)
  - Incorrect dose administered [Recovered/Resolved]
